FAERS Safety Report 10178332 (Version 1)
Quarter: 2014Q2

REPORT INFORMATION
  Report Type: Spontaneous
  Country: US (occurrence: None)
  Receive Date: 20140516
  Receipt Date: 20140516
  Transmission Date: 20141212
  Serious: Yes (Life-Threatening)
  Sender: FDA-Public Use
  Company Number: None

PATIENT
  Age: 79 Year
  Sex: Female

DRUGS (8)
  1. RISPERDAL [Suspect]
  2. LEVOTHYOXINE [Concomitant]
  3. LISINOPRIL [Concomitant]
  4. METFORMIN [Concomitant]
  5. SIMETHICONE [Concomitant]
  6. PRAVATIN [Concomitant]
  7. MELOXICAM [Concomitant]
  8. DOCUSATE SODIUM [Concomitant]

REACTIONS (6)
  - Cerebrovascular accident [None]
  - Swelling face [None]
  - Peripheral swelling [None]
  - Peripheral swelling [None]
  - Dysstasia [None]
  - Musculoskeletal stiffness [None]
